FAERS Safety Report 25163714 (Version 1)
Quarter: 2025Q2

REPORT INFORMATION
  Report Type: Spontaneous
  Country: TR (occurrence: TR)
  Receive Date: 20250405
  Receipt Date: 20250405
  Transmission Date: 20250717
  Serious: Yes (Hospitalization)
  Sender: AMGEN
  Company Number: TR-AMGEN-TURSP2025061184

PATIENT
  Age: 24 Month
  Sex: Female

DRUGS (2)
  1. CINACALCET HYDROCHLORIDE [Suspect]
     Active Substance: CINACALCET HYDROCHLORIDE
     Indication: Hyperparathyroidism
     Dosage: 20 MILLIGRAM/SQ. METER, BID
     Route: 065
  2. CINACALCET HYDROCHLORIDE [Suspect]
     Active Substance: CINACALCET HYDROCHLORIDE
     Route: 065

REACTIONS (5)
  - Respiratory distress [Recovered/Resolved]
  - Hypocalcaemia [Recovered/Resolved]
  - Hypercalcaemia [Recovered/Resolved]
  - Drug ineffective for unapproved indication [Unknown]
  - Off label use [Unknown]
